FAERS Safety Report 19069474 (Version 4)
Quarter: 2021Q4

REPORT INFORMATION
  Report Type: Spontaneous
  Country: US (occurrence: US)
  Receive Date: 20210329
  Receipt Date: 20211001
  Transmission Date: 20220303
  Serious: Yes (Death, Other)
  Sender: FDA-Public Use
  Company Number: US-PFIZER INC-2021198363

PATIENT
  Age: 77 Year
  Sex: Female

DRUGS (1)
  1. XELJANZ XR [Suspect]
     Active Substance: TOFACITINIB CITRATE
     Indication: Rheumatoid arthritis
     Dosage: 11 MG, 1X/DAY
     Route: 048
     Dates: start: 2019, end: 202109

REACTIONS (10)
  - Death [Fatal]
  - Rheumatoid arthritis [Unknown]
  - Fall [Unknown]
  - Hand fracture [Unknown]
  - Upper limb fracture [Unknown]
  - Facial bones fracture [Unknown]
  - Foot fracture [Unknown]
  - Contusion [Unknown]
  - COVID-19 [Recovered/Resolved]
  - Illness [Unknown]

NARRATIVE: CASE EVENT DATE: 20210121
